FAERS Safety Report 19879560 (Version 1)
Quarter: 2021Q3

REPORT INFORMATION
  Report Type: Spontaneous
  Country: DE (occurrence: DE)
  Receive Date: 20210924
  Receipt Date: 20210924
  Transmission Date: 20211014
  Serious: Yes (Hospitalization)
  Sender: FDA-Public Use
  Company Number: DE-BAYER-2021A215501

PATIENT
  Age: 27 Year
  Sex: Female

DRUGS (1)
  1. MIRENA [Suspect]
     Active Substance: LEVONORGESTREL
     Dosage: 20 ?G, CONT
     Route: 015
     Dates: start: 20130801, end: 20201030

REACTIONS (11)
  - Eating disorder [Not Recovered/Not Resolved]
  - Palpitations [Recovering/Resolving]
  - Device use issue [None]
  - Panic attack [Recovering/Resolving]
  - Loss of libido [Recovered/Resolved]
  - Suicidal ideation [Not Recovered/Not Resolved]
  - Abdominal pain [Recovering/Resolving]
  - Intermenstrual bleeding [Recovered/Resolved]
  - Hyperhidrosis [Recovering/Resolving]
  - Social anxiety disorder [Not Recovered/Not Resolved]
  - Obsessive thoughts [Not Recovered/Not Resolved]

NARRATIVE: CASE EVENT DATE: 20130830
